FAERS Safety Report 8818846 (Version 2)
Quarter: 2012Q4

REPORT INFORMATION
  Report Type: 
  Country: JP (occurrence: JP)
  Receive Date: 20121001
  Receipt Date: 20121022
  Transmission Date: 20130627
  Serious: Yes (Hospitalization, Other)
  Sender: FDA-Public Use
  Company Number: PHHY2012JP084142

PATIENT
  Age: 70 Year
  Sex: Female

DRUGS (1)
  1. FEMARA [Suspect]
     Indication: BREAST CANCER
     Dosage: 2.5 mg, daily
     Route: 048
     Dates: start: 20120825, end: 20120924

REACTIONS (3)
  - Cardiac failure [Not Recovered/Not Resolved]
  - Dyspnoea [Recovering/Resolving]
  - Pulmonary hypertension [Unknown]
